FAERS Safety Report 10181541 (Version 2)
Quarter: 2014Q4

REPORT INFORMATION
  Report Type: Spontaneous
  Country: US (occurrence: US)
  Receive Date: 20140519
  Receipt Date: 20141209
  Transmission Date: 20150528
  Serious: Yes (Other)
  Sender: FDA-Public Use
  Company Number: US-GLAXOSMITHKLINE-A1073588A

PATIENT

DRUGS (59)
  1. SUMATRIPTAN. [Suspect]
     Active Substance: SUMATRIPTAN
     Indication: MIGRAINE
     Route: 065
  2. BUPROPION [Suspect]
     Active Substance: BUPROPION
  3. TYLENOL [Suspect]
     Active Substance: ACETAMINOPHEN
  4. COENZYME Q10 [Suspect]
     Active Substance: UBIDECARENONE
  5. MAXALT-MLT [Suspect]
     Active Substance: RIZATRIPTAN BENZOATE
  6. EXCEDRIN MIGRAINE [Suspect]
     Active Substance: ACETAMINOPHEN\ASPIRIN\CAFFEINE
  7. MOTRIN [Suspect]
     Active Substance: IBUPROFEN
  8. MAXALT [Suspect]
     Active Substance: RIZATRIPTAN BENZOATE
  9. DEPAKOTE [Suspect]
     Active Substance: DIVALPROEX SODIUM
  10. MIDRIN [Suspect]
     Active Substance: ACETAMINOPHEN\DICHLORALPHENAZONE\ISOMETHEPTENE
  11. YASMIN [Suspect]
     Active Substance: DROSPIRENONE\ETHINYL ESTRADIOL
  12. MEDICATION UNKNOWN [Suspect]
     Active Substance: UNSPECIFIED INGREDIENT
  13. OPIATE [Suspect]
     Active Substance: UNSPECIFIED INGREDIENT
  14. FLONASE [Suspect]
     Active Substance: FLUTICASONE PROPIONATE
     Indication: PRODUCT USED FOR UNKNOWN INDICATION
     Route: 065
  15. ASPIRIN. [Suspect]
     Active Substance: ASPIRIN
  16. NEURONTIN [Suspect]
     Active Substance: GABAPENTIN
  17. ERGONOVINE MALEATE. [Suspect]
     Active Substance: ERGONOVINE MALEATE
  18. PHENERGAN [Suspect]
     Active Substance: PROMETHAZINE HYDROCHLORIDE
  19. AMITRIPTYLINE [Suspect]
     Active Substance: AMITRIPTYLINE
  20. IMITREX [Suspect]
     Active Substance: SUMATRIPTAN\SUMATRIPTAN SUCCINATE
     Route: 065
  21. SUMATRIPTAN. [Suspect]
     Active Substance: SUMATRIPTAN
     Indication: MIGRAINE
     Dosage: 100 MG TABLETS, UNKNOWN DOSING
     Route: 065
     Dates: start: 2013
  22. SUMATRIPTAN. [Suspect]
     Active Substance: SUMATRIPTAN
     Indication: MIGRAINE
     Route: 065
  23. AMERGE [Suspect]
     Active Substance: NARATRIPTAN HYDROCHLORIDE
  24. LAMICTAL [Suspect]
     Active Substance: LAMOTRIGINE
     Indication: PRODUCT USED FOR UNKNOWN INDICATION
     Route: 065
  25. GINGER. [Suspect]
     Active Substance: GINGER
  26. GINKGO [Suspect]
     Active Substance: GINKGO
  27. SEROQUEL [Suspect]
     Active Substance: QUETIAPINE FUMARATE
  28. ZOMIG [Suspect]
     Active Substance: ZOLMITRIPTAN
  29. ERGOTRATE [Suspect]
     Active Substance: ERGONOVINE MALEATE
  30. CAFERGOT [Suspect]
     Active Substance: CAFFEINE\ERGOTAMINE TARTRATE
  31. DHE (DIHYDROERGOTAMINE MESILATE) [Suspect]
     Active Substance: DIHYDROERGOTAMINE
  32. ADVIL [Suspect]
     Active Substance: IBUPROFEN
  33. PROMETHAZINE [Suspect]
     Active Substance: PROMETHAZINE\PROMETHAZINE HYDROCHLORIDE
  34. AMBIEN [Suspect]
     Active Substance: ZOLPIDEM TARTRATE
  35. LORAZEPAM. [Suspect]
     Active Substance: LORAZEPAM
  36. CYMBALTA [Suspect]
     Active Substance: DULOXETINE HYDROCHLORIDE
  37. IMITREX [Suspect]
     Active Substance: SUMATRIPTAN\SUMATRIPTAN SUCCINATE
     Route: 065
  38. ALEVE [Suspect]
     Active Substance: NAPROXEN SODIUM
  39. MAGNESIUM [Suspect]
     Active Substance: MAGNESIUM
  40. VERAPAMIL [Suspect]
     Active Substance: VERAPAMIL HYDROCHLORIDE
  41. AUROTO [Suspect]
     Active Substance: ANTIPYRINE\BENZOCAINE
  42. ZOLOFT [Suspect]
     Active Substance: SERTRALINE HYDROCHLORIDE
  43. FEVERFEW [Suspect]
     Active Substance: FEVERFEW
  44. NIACIN. [Suspect]
     Active Substance: NIACIN
  45. MIGRANAL [Suspect]
     Active Substance: DIHYDROERGOTAMINE MESYLATE
  46. TOPAMAX [Suspect]
     Active Substance: TOPIRAMATE
  47. MIDCHLOR [Suspect]
     Active Substance: ACETAMINOPHEN\DICHLORALPHENAZONE\ISOMETHEPTENE MUCATE
  48. PROCHLORPERAZINE. [Suspect]
     Active Substance: PROCHLORPERAZINE
  49. ZYRTEC-D [Suspect]
     Active Substance: CETIRIZINE HYDROCHLORIDE\PSEUDOEPHEDRINE HYDROCHLORIDE
  50. ALLEGRA [Suspect]
     Active Substance: FEXOFENADINE HYDROCHLORIDE
  51. FIORICET WITH CODEINE [Concomitant]
     Active Substance: ACETAMINOPHEN\BUTALBITAL\CAFFEINE\CODEINE PHOSPHATE
  52. VITAMIN B [Suspect]
     Active Substance: VITAMIN B
  53. FROVA [Suspect]
     Active Substance: FROVATRIPTAN SUCCINATE
  54. RELPAX [Suspect]
     Active Substance: ELETRIPTAN HYDROBROMIDE
  55. NAPROSYN [Suspect]
     Active Substance: NAPROXEN
  56. NAPROXEN. [Suspect]
     Active Substance: NAPROXEN
  57. CEPHALEXIN. [Suspect]
     Active Substance: CEPHALEXIN
  58. NUVARING [Suspect]
     Active Substance: ETHINYL ESTRADIOL\ETONOGESTREL
  59. YAZ [Suspect]
     Active Substance: DROSPIRENONE\ETHINYL ESTRADIOL

REACTIONS (19)
  - Parosmia [Unknown]
  - Rash [Unknown]
  - Migraine [Unknown]
  - Memory impairment [Unknown]
  - Feeling of despair [Unknown]
  - Anxiety [Unknown]
  - Chest discomfort [Unknown]
  - Dyspnoea [Unknown]
  - Seizure [Unknown]
  - Drug ineffective [Unknown]
  - Suicidal ideation [Unknown]
  - Abdominal pain upper [Unknown]
  - Tinnitus [Unknown]
  - Cognitive disorder [Unknown]
  - Tremor [Unknown]
  - Disturbance in attention [Unknown]
  - Throat tightness [Unknown]
  - Panic attack [Unknown]
  - Therapeutic response decreased [Unknown]
